FAERS Safety Report 13893463 (Version 1)
Quarter: 2017Q3

REPORT INFORMATION
  Report Type: Spontaneous
  Country: US (occurrence: US)
  Receive Date: 20170822
  Receipt Date: 20170822
  Transmission Date: 20171127
  Serious: Yes (Other)
  Sender: FDA-Public Use
  Company Number: US-INCYTE CORPORATION-2017IN006932

PATIENT

DRUGS (1)
  1. JAKAFI [Suspect]
     Active Substance: RUXOLITINIB
     Indication: POLYCYTHAEMIA VERA
     Dosage: 15 MG QAM, 10 MG QPM
     Route: 048
     Dates: start: 20150112

REACTIONS (3)
  - Pneumonia [Unknown]
  - Skin cancer [Unknown]
  - Herpes zoster [Unknown]
